FAERS Safety Report 23122404 (Version 2)
Quarter: 2023Q4

REPORT INFORMATION
  Report Type: Spontaneous
  Country: FR (occurrence: FR)
  Receive Date: 20231030
  Receipt Date: 20231102
  Transmission Date: 20240110
  Serious: Yes (Hospitalization)
  Sender: FDA-Public Use
  Company Number: None

PATIENT
  Age: 47 Year
  Sex: Female

DRUGS (4)
  1. IBUPROFEN [Suspect]
     Active Substance: IBUPROFEN
     Dosage: 1 DOSAGE FORM, (1 TOTAL) (1 SINGLE SOCKET)
     Route: 048
     Dates: start: 20230923, end: 20230923
  2. IBUPROFEN [Suspect]
     Active Substance: IBUPROFEN
     Indication: Headache
     Dosage: 1 DOSAGE FORM, (TOTAL) 1 PRISE UNIQUE
     Route: 048
     Dates: start: 20230923, end: 20230923
  3. VOLTAREN [Suspect]
     Active Substance: DICLOFENAC SODIUM
     Dosage: 1 DOSAGE FORM, (1 TOTAL) (1 SINGLE SOCKET)
     Route: 048
     Dates: start: 20230922, end: 20230922
  4. VOLTAREN [Suspect]
     Active Substance: DICLOFENAC SODIUM
     Indication: Back pain
     Dosage: 1 DOSAGE FORM, (TOTAL) 1 PRISE UNIQUE
     Route: 048
     Dates: start: 20230922, end: 20230922

REACTIONS (2)
  - Rash maculo-papular [Recovered/Resolved]
  - Eosinophil count increased [Recovered/Resolved]

NARRATIVE: CASE EVENT DATE: 20230923
